FAERS Safety Report 17731371 (Version 1)
Quarter: 2020Q2

REPORT INFORMATION
  Report Type: Spontaneous
  Country: US (occurrence: US)
  Receive Date: 20200430
  Receipt Date: 20200430
  Transmission Date: 20200714
  Serious: Yes (Other)
  Sender: FDA-Public Use
  Company Number: US-BAXTER-2020BAX008785

PATIENT
  Age: 59 Year
  Sex: Male

DRUGS (5)
  1. VINCRISTINE [Suspect]
     Active Substance: VINCRISTINE
     Indication: HIGH-GRADE B-CELL LYMPHOMA
     Dosage: 6 CYCLES OF DOSE-ADJUSTED EPOCH
     Route: 065
  2. DOXIL [Suspect]
     Active Substance: DOXORUBICIN HYDROCHLORIDE
     Indication: HIGH-GRADE B-CELL LYMPHOMA
     Dosage: 6 CYCLES OF DOSE-ADJUSTED EPOCH
     Route: 065
  3. ETOPOSIDE. [Suspect]
     Active Substance: ETOPOSIDE
     Indication: HIGH-GRADE B-CELL LYMPHOMA
     Dosage: 6 CYCLES OF DOSE-ADJUSTED EPOCH
     Route: 065
  4. PREDNISONE. [Suspect]
     Active Substance: PREDNISONE
     Indication: HIGH-GRADE B-CELL LYMPHOMA
     Dosage: 6 CYCLES OF DOSE-ADJUSTED EPOCH
     Route: 065
  5. CYCLOPHOSPHAMIDE FOR INJECTION, USP [Suspect]
     Active Substance: CYCLOPHOSPHAMIDE
     Indication: HIGH-GRADE B-CELL LYMPHOMA
     Dosage: 6 CYCLES OF DOSE-ADJUSTED EPOCH
     Route: 065

REACTIONS (4)
  - Scrotal abscess [Unknown]
  - Febrile neutropenia [Unknown]
  - Device related thrombosis [Unknown]
  - Venous thrombosis [Unknown]
